FAERS Safety Report 8897014 (Version 1)
Quarter: 2012Q4

REPORT INFORMATION
  Report Type: 
  Country: US (occurrence: US)
  Receive Date: 20121108
  Receipt Date: 20121108
  Transmission Date: 20130627
  Serious: No
  Sender: FDA-Public Use
  Company Number: US-AMGEN-USASP2012025595

PATIENT
  Sex: Female

DRUGS (6)
  1. ENBREL [Suspect]
     Indication: RHEUMATOID ARTHRITIS
     Dosage: 50 mg, qwk
     Dates: start: 201204
  2. PREDNISONE [Concomitant]
  3. LEFLUNOMIDE [Concomitant]
  4. HYDROCHLOORTHIAZIDE [Concomitant]
  5. FISH OIL [Concomitant]
  6. HYDROCODONE/APAP [Concomitant]
     Dosage: UNK UNK, prn

REACTIONS (2)
  - Respiratory tract congestion [Unknown]
  - Nasopharyngitis [Unknown]
